FAERS Safety Report 5381582-2 (Version None)
Quarter: 2007Q2

REPORT INFORMATION
  Report Type: 
  Country: None (occurrence: None)
  Receive Date: 20070629
  Receipt Date: 20070308
  Transmission Date: 20071010
  Serious: Yes (Other)
  Sender: FDA-Public Use
  Company Number: US200703001769

PATIENT
  Sex: Female

DRUGS (1)
  1. HUMALOG PEN [Suspect]

REACTIONS (5)
  - BLOOD GLUCOSE DECREASED [None]
  - CATARACT [None]
  - INJECTION SITE BRUISING [None]
  - MACULAR DEGENERATION [None]
  - RETINAL HAEMORRHAGE [None]
